FAERS Safety Report 4518399-4 (Version None)
Quarter: 2004Q4

REPORT INFORMATION
  Report Type: 
  Country: None (occurrence: None)
  Receive Date: 20041102
  Receipt Date: 20040105
  Transmission Date: 20050328
  Serious: Yes (Life-Threatening, Hospitalization)
  Sender: FDA-Public Use
  Company Number: PHEH2003US09427

PATIENT
  Age: 78 Year
  Sex: Female
  Weight: 74.4 kg

DRUGS (9)
  1. LESCOL XL [Suspect]
     Indication: HYPERCHOLESTEROLAEMIA
     Dosage: 80 MG QD
     Dates: start: 20030430, end: 20030610
  2. TENORMIN [Concomitant]
  3. HYZAAR [Concomitant]
  4. ASPIRIN [Concomitant]
  5. HUMALOG/GFR/(INSULIN LISPRO) [Concomitant]
  6. MAXZIDE [Concomitant]
  7. AVANDIA [Concomitant]
  8. XANAX [Concomitant]
  9. ACTOS/CAN/(PIOGLITAZONE, PIOGLITAZONE HYDROCHLORIDE) [Concomitant]

REACTIONS (5)
  - ALANINE AMINOTRANSFERASE INCREASED [None]
  - ASPARTATE AMINOTRANSFERASE INCREASED [None]
  - BLOOD CREATINE PHOSPHOKINASE INCREASED [None]
  - MUSCLE CRAMP [None]
  - RHABDOMYOLYSIS [None]
